FAERS Safety Report 20467775 (Version 1)
Quarter: 2022Q1

REPORT INFORMATION
  Report Type: Other
  Country: US (occurrence: None)
  Receive Date: 20220214
  Receipt Date: 20220214
  Transmission Date: 20220423
  Serious: Yes (Other)
  Sender: FDA-Public Use
  Company Number: US-ROCHE-3018086

PATIENT
  Sex: Female

DRUGS (3)
  1. XELODA [Suspect]
     Active Substance: CAPECITABINE
     Indication: Breast cancer female
     Dosage: TAKE 3 TABLET(S) BY MOUTH TWICE A DAY FOR 14 DAYS ON, THEN 7 DAYS OFF
     Route: 048
  2. XELODA [Suspect]
     Active Substance: CAPECITABINE
     Indication: Ovarian cancer
  3. XELODA [Suspect]
     Active Substance: CAPECITABINE
     Indication: Cerebellar stroke

REACTIONS (2)
  - Cerebrovascular accident [Unknown]
  - Neoplasm progression [Unknown]
